FAERS Safety Report 4723300-4 (Version None)
Quarter: 2005Q3

REPORT INFORMATION
  Report Type: 
  Country: None (occurrence: None)
  Receive Date: 20050725
  Receipt Date: 20041201
  Transmission Date: 20060218
  Serious: No
  Sender: FDA-Public Use
  Company Number: US-BRISTOL-MYERS SQUIBB COMPANY-12781449

PATIENT
  Age: 43 Year
  Sex: Female
  Weight: 52 kg

DRUGS (2)
  1. DOVONEX [Suspect]
     Indication: EXFOLIATIVE RASH
     Route: 061
     Dates: start: 20041101
  2. ELIDEL [Concomitant]

REACTIONS (2)
  - ERYTHEMA [None]
  - SKIN EXFOLIATION [None]
